FAERS Safety Report 25374711 (Version 1)
Quarter: 2025Q2

REPORT INFORMATION
  Report Type: Spontaneous
  Country: US (occurrence: None)
  Receive Date: 20250528
  Receipt Date: 20250528
  Transmission Date: 20250716
  Serious: Yes (Life-Threatening, Hospitalization, Disabling)
  Sender: FDA-CTU
  Company Number: None

PATIENT
  Age: 34 Year
  Sex: Female
  Weight: 52.2 kg

DRUGS (4)
  1. VILAZODONE [Suspect]
     Active Substance: VILAZODONE
     Dosage: OTHER QUANTITY : 1 TABLET(S);?FREQUENCY : DAILY;?
     Route: 048
     Dates: start: 20160101, end: 20230507
  2. Viibryd 20 mg daily [Concomitant]
     Dosage: FREQUENCY : DAILY;?
  3. Lunesta 3 mg HS [Concomitant]
  4. vit d 1600 IU daily [Concomitant]

REACTIONS (12)
  - Withdrawal syndrome [None]
  - Akathisia [None]
  - Impaired gastric emptying [None]
  - Autonomic failure syndrome [None]
  - Panic attack [None]
  - Suicidal behaviour [None]
  - Nervous system disorder [None]
  - Cognitive disorder [None]
  - Amnesia [None]
  - Amnesia [None]
  - Neuropathy peripheral [None]
  - Temperature intolerance [None]

NARRATIVE: CASE EVENT DATE: 20230505
